FAERS Safety Report 15653373 (Version 1)
Quarter: 2018Q4

REPORT INFORMATION
  Report Type: Spontaneous
  Country: TR (occurrence: TR)
  Receive Date: 20181124
  Receipt Date: 20181124
  Transmission Date: 20190205
  Serious: Yes (Other)
  Sender: FDA-Public Use
  Company Number: TR-UNICHEM PHARMACEUTICALS (USA) INC-UCM201811-000308

PATIENT
  Age: 46 Year
  Sex: Male

DRUGS (1)
  1. CETIRIZINE, HCL [Suspect]
     Active Substance: CETIRIZINE HYDROCHLORIDE
     Indication: DERMATITIS CONTACT

REACTIONS (1)
  - Drug-induced liver injury [Recovered/Resolved]
